FAERS Safety Report 14026885 (Version 1)
Quarter: 2017Q3

REPORT INFORMATION
  Report Type: Report from Study
  Country: US (occurrence: US)
  Receive Date: 20170929
  Receipt Date: 20170929
  Transmission Date: 20171128
  Serious: Yes (Death, Hospitalization, Other)
  Sender: FDA-Public Use
  Company Number: US-GILEAD-2017-0295548

PATIENT
  Sex: Male

DRUGS (1)
  1. RANOLAZINE. [Suspect]
     Active Substance: RANOLAZINE
     Indication: VENTRICULAR ARRHYTHMIA
     Dosage: 2 DF, BID 2 TABLETS
     Route: 065

REACTIONS (6)
  - Lung disorder [Unknown]
  - Systemic infection [Unknown]
  - Dizziness [Unknown]
  - Neoplasm malignant [Unknown]
  - Death [Fatal]
  - Unevaluable event [Unknown]
